FAERS Safety Report 5853918-7 (Version None)
Quarter: 2008Q3

REPORT INFORMATION
  Report Type: 
  Country: None (occurrence: None)
  Receive Date: 20080822
  Receipt Date: 20080820
  Transmission Date: 20090109
  Serious: Yes (Death, Hospitalization)
  Sender: FDA-Public Use
  Company Number: A0743817A

PATIENT
  Age: 71 Year
  Sex: Female

DRUGS (1)
  1. AVANDIA [Suspect]
     Dosage: 4MG IN THE MORNING
     Route: 048
     Dates: start: 19990901, end: 20000108

REACTIONS (2)
  - DEATH [None]
  - RENAL FAILURE ACUTE [None]
